FAERS Safety Report 23186269 (Version 1)
Quarter: 2023Q4

REPORT INFORMATION
  Report Type: Other
  Country: CN (occurrence: CN)
  Receive Date: 20231115
  Receipt Date: 20231115
  Transmission Date: 20240109
  Serious: Yes (Other)
  Sender: FDA-Public Use
  Company Number: CN-GE HEALTHCARE-2023CSU010178

PATIENT
  Age: 85 Year
  Sex: Male
  Weight: 65 kg

DRUGS (4)
  1. OMNIPAQUE [Suspect]
     Active Substance: IOHEXOL
     Indication: Urogram
     Dosage: 75 ML, SINGLE
     Route: 042
     Dates: start: 20231028, end: 20231028
  2. OMNIPAQUE [Suspect]
     Active Substance: IOHEXOL
     Indication: Hydronephrosis
  3. OMNIPAQUE [Suspect]
     Active Substance: IOHEXOL
     Indication: Nephrolithiasis
  4. SODIUM CHLORIDE [Concomitant]
     Active Substance: SODIUM CHLORIDE
     Indication: Hydronephrosis
     Dosage: 30 ML, SINGLE
     Route: 042
     Dates: start: 20231028, end: 20231028

REACTIONS (2)
  - Dysphonia [Recovering/Resolving]
  - Dyspnoea [Recovering/Resolving]

NARRATIVE: CASE EVENT DATE: 20231028
